FAERS Safety Report 26106973 (Version 1)
Quarter: 2025Q4

REPORT INFORMATION
  Report Type: Spontaneous
  Country: EU (occurrence: EU)
  Receive Date: 20251201
  Receipt Date: 20251201
  Transmission Date: 20260117
  Serious: Yes (Other)
  Sender: DR REDDYS
  Company Number: None

PATIENT
  Age: 56 Year
  Sex: Male

DRUGS (2)
  1. BENDAMUSTINE HYDROCHLORIDE [Suspect]
     Active Substance: BENDAMUSTINE HYDROCHLORIDE
     Indication: Cutaneous T-cell lymphoma
     Route: 042
     Dates: end: 20230929
  2. ADCETRIS [Suspect]
     Active Substance: BRENTUXIMAB VEDOTIN
     Indication: Cutaneous T-cell lymphoma
     Dosage: TOUTE LES 3 A 4 SEMAINES
     Route: 042
     Dates: end: 20251027

REACTIONS (1)
  - Peripheral sensorimotor neuropathy [Not Recovered/Not Resolved]

NARRATIVE: CASE EVENT DATE: 20230601
